FAERS Safety Report 8439229-4 (Version None)
Quarter: 2012Q2

REPORT INFORMATION
  Report Type: 
  Country: None (occurrence: None)
  Receive Date: 20120615
  Receipt Date: 20120610
  Transmission Date: 20120825
  Serious: Yes (Other)
  Sender: FDA-Public Use
  Company Number: PHHY2012MX050716

PATIENT
  Sex: Male

DRUGS (7)
  1. DIOVAN [Suspect]
     Dosage: 1 DF, PER DAY
     Dates: start: 20120521
  2. BI-EUGLUCON [Concomitant]
  3. ASPIRIN [Concomitant]
  4. GLUCOBAY [Concomitant]
  5. ATACAND [Concomitant]
  6. METFORMIN HCL [Suspect]
     Indication: DIABETES MELLITUS
     Dosage: 2 DF (100 DAILY)
     Dates: start: 20120521
  7. DIOVAN [Suspect]
     Indication: HYPERTENSION
     Dosage: 1 DF, PER DAY
     Dates: start: 20120521

REACTIONS (1)
  - BLOOD GLUCOSE INCREASED [None]
